FAERS Safety Report 6911649-6 (Version None)
Quarter: 2010Q3

REPORT INFORMATION
  Report Type: 
  Country: None (occurrence: None)
  Receive Date: 20100806
  Receipt Date: 20100726
  Transmission Date: 20110219
  Serious: Yes (Other)
  Sender: FDA-Public Use
  Company Number: PHHY2010US35046

PATIENT
  Sex: Male
  Weight: 178 kg

DRUGS (8)
  1. ZOMETA [Suspect]
     Indication: PROSTATE CANCER
     Dosage: 4 MG, MONTHLY
     Dates: end: 20080304
  2. SAW PALMETTO [Concomitant]
  3. CALCIUM [Concomitant]
  4. VITAMIN A [Concomitant]
  5. VITAMIN B [Concomitant]
  6. PROTEIN SUPPLEMENTS [Concomitant]
  7. ACETAMINOPHEN [Concomitant]
  8. NIASPAN [Concomitant]
     Dosage: 500 MG, BID

REACTIONS (3)
  - BONE DISORDER [None]
  - DEBRIDEMENT [None]
  - OSTEONECROSIS OF JAW [None]
